FAERS Safety Report 4578114-5 (Version None)
Quarter: 2005Q1

REPORT INFORMATION
  Report Type: 
  Country: None (occurrence: None)
  Receive Date: 20050127
  Receipt Date: 20040901
  Transmission Date: 20050727
  Serious: No
  Sender: FDA-Public Use
  Company Number: USA040977133

PATIENT
  Age: 15 Year
  Sex: Female
  Weight: 82 kg

DRUGS (5)
  1. STRATTERA [Suspect]
     Indication: ATTENTION DEFICIT/HYPERACTIVITY DISORDER
     Dosage: 40 MG/2 DAY
     Dates: start: 20040801
  2. PAXIL [Concomitant]
  3. ALLEGRA [Concomitant]
  4. DOXYCYCLINE [Concomitant]
  5. ORAL CONTRACEPTIVE NOS [Concomitant]

REACTIONS (5)
  - ABDOMINAL PAIN UPPER [None]
  - DIZZINESS [None]
  - HYPERSOMNIA [None]
  - MALAISE [None]
  - NAUSEA [None]
